FAERS Safety Report 24586137 (Version 1)
Quarter: 2024Q4

REPORT INFORMATION
  Report Type: Spontaneous
  Country: RO (occurrence: RO)
  Receive Date: 20241106
  Receipt Date: 20241106
  Transmission Date: 20250115
  Serious: Yes (Other)
  Sender: ELI LILLY AND COMPANY
  Company Number: RO-ELI_LILLY_AND_COMPANY-RO202410019813

PATIENT
  Age: 65 Year
  Sex: Female

DRUGS (5)
  1. ABEMACICLIB [Suspect]
     Active Substance: ABEMACICLIB
     Indication: Breast cancer
     Dosage: 2 DOSAGE FORM, DAILY
     Route: 065
     Dates: start: 20220309
  2. ABEMACICLIB [Suspect]
     Active Substance: ABEMACICLIB
     Dosage: 100 MG, BID
     Route: 065
  3. ABEMACICLIB [Suspect]
     Active Substance: ABEMACICLIB
     Dosage: 50 MG, UNKNOWN
     Route: 065
     Dates: end: 202410
  4. LETROZOLE [Concomitant]
     Active Substance: LETROZOLE
     Indication: Product used for unknown indication
     Dosage: 2.5 MG, DAILY
     Route: 065
  5. TRAMADOL [Concomitant]
     Active Substance: TRAMADOL
     Indication: Analgesic therapy
     Dosage: 2 DOSAGE FORM, DAILY
     Route: 065

REACTIONS (5)
  - Hepatic cytolysis [Unknown]
  - Neutropenia [Unknown]
  - Diarrhoea [Unknown]
  - Thrombocytopenia [Recovered/Resolved]
  - Therapeutic response decreased [Unknown]
